FAERS Safety Report 7127910-9 (Version None)
Quarter: 2010Q4

REPORT INFORMATION
  Report Type: 
  Country: None (occurrence: None)
  Receive Date: 20101112
  Receipt Date: 20101101
  Transmission Date: 20110411
  Serious: Yes (Disabling, Other)
  Sender: FDA-Public Use
  Company Number: DSU-2010-05885

PATIENT
  Sex: Male

DRUGS (5)
  1. BENICAR HCT [Suspect]
     Indication: HYPERTENSION
     Dosage: 40/25MG (QD), PER ORAL
     Route: 048
     Dates: start: 20080101
  2. BENICAR [Suspect]
     Indication: HYPERTENSION
     Dosage: ,PER ORAL
     Route: 048
     Dates: start: 20080101, end: 20080101
  3. ACETAMINOPHEN AND PROPDXYPHENE(PROPDXYPHENE, PARACETAMOL)(PROPDXYPHENE [Concomitant]
  4. ALPRAZOLAM [Concomitant]
  5. NEXIUM [Concomitant]

REACTIONS (7)
  - ACCIDENT AT WORK [None]
  - ARTHRALGIA [None]
  - BLOOD PRESSURE INCREASED [None]
  - CHONDROPATHY [None]
  - GAIT DISTURBANCE [None]
  - MENISCUS LESION [None]
  - UNEMPLOYMENT [None]
